FAERS Safety Report 8987628 (Version 1)
Quarter: 2012Q4

REPORT INFORMATION
  Report Type: 
  Country: IL (occurrence: IL)
  Receive Date: 20121227
  Receipt Date: 20121227
  Transmission Date: 20130627
  Serious: Yes (Other)
  Sender: FDA-Public Use
  Company Number: IL-ABBOTT-12P-082-1025464-00

PATIENT
  Age: 58 Year
  Sex: Male

DRUGS (7)
  1. CLARITHROMYCIN [Suspect]
     Indication: PEPTIC ULCER
  2. CLARITHROMYCIN [Interacting]
     Indication: HELICOBACTER GASTRITIS
  3. OMEPRAZOLE [Interacting]
     Indication: PEPTIC ULCER
  4. OMEPRAZOLE [Interacting]
     Indication: HELICOBACTER GASTRITIS
  5. CARBAMAZEPINE [Interacting]
     Indication: GRAND MAL CONVULSION
  6. AMOXICILLIN [Concomitant]
     Indication: PEPTIC ULCER
  7. AMOXICILLIN [Concomitant]
     Indication: HELICOBACTER GASTRITIS

REACTIONS (3)
  - Drug interaction [Recovered/Resolved]
  - Toxicity to various agents [Recovered/Resolved]
  - Drug interaction [Recovered/Resolved]
